FAERS Safety Report 12416382 (Version 1)
Quarter: 2016Q2

REPORT INFORMATION
  Report Type: Spontaneous
  Country: US (occurrence: US)
  Receive Date: 20160530
  Receipt Date: 20160530
  Transmission Date: 20160815
  Serious: No
  Sender: FDA-Public Use
  Company Number: PHEH2016US013207

PATIENT
  Age: 60 Year
  Sex: Female

DRUGS (1)
  1. PROMACTA [Suspect]
     Active Substance: ELTROMBOPAG OLAMINE
     Indication: PANCYTOPENIA
     Dosage: 50 MG, BID
     Route: 048
     Dates: start: 20140810

REACTIONS (2)
  - Product use issue [Unknown]
  - Alopecia [Unknown]

NARRATIVE: CASE EVENT DATE: 20160516
